FAERS Safety Report 14170962 (Version 1)
Quarter: 2017Q4

REPORT INFORMATION
  Report Type: Spontaneous
  Country: US (occurrence: US)
  Receive Date: 20171108
  Receipt Date: 20171108
  Transmission Date: 20180321
  Serious: No
  Sender: FDA-Public Use
  Company Number: US-BAYER-2017-210598

PATIENT
  Sex: Female

DRUGS (2)
  1. NEULASTA [Concomitant]
     Active Substance: PEGFILGRASTIM
  2. CLARITIN [Suspect]
     Active Substance: LORATADINE
     Indication: BONE PAIN
     Dosage: UNK
     Route: 048

REACTIONS (4)
  - Inappropriate prescribing [Unknown]
  - Drug administration error [None]
  - Product use in unapproved indication [Unknown]
  - Product packaging issue [None]
